FAERS Safety Report 11843461 (Version 8)
Quarter: 2019Q4

REPORT INFORMATION
  Report Type: Report from Study
  Country: CA (occurrence: CA)
  Receive Date: 20151217
  Receipt Date: 20191003
  Transmission Date: 20200122
  Serious: Yes (Other)
  Sender: FDA-Public Use
  Company Number: CA-ROCHE-1487796

PATIENT
  Age: 81 Year
  Sex: Female
  Weight: 68 kg

DRUGS (16)
  1. ACETAMINOPHEN. [Concomitant]
     Active Substance: ACETAMINOPHEN
     Indication: PREMEDICATION
     Route: 048
     Dates: start: 20140416
  2. METHYLPREDNISOLONE. [Concomitant]
     Active Substance: METHYLPREDNISOLONE
     Indication: PREMEDICATION
     Route: 042
     Dates: start: 20140416
  3. ZANTAC [Concomitant]
     Active Substance: RANITIDINE HYDROCHLORIDE
     Indication: PREMEDICATION
     Route: 048
     Dates: start: 20140416, end: 20140416
  4. CELLCEPT [Concomitant]
     Active Substance: MYCOPHENOLATE MOFETIL\MYCOPHENOLATE MOFETIL HYDROCHLORIDE
     Indication: PEMPHIGOID
  5. RITUXAN [Suspect]
     Active Substance: RITUXIMAB
     Indication: OCULAR PEMPHIGOID
     Dosage: DATE OF MOST RECENT DOSE OF RITUXIMAB INFUSION: 30/APR/2014?DATE OF MOST RECENT DOSE OF RITUXIMAB IN
     Route: 042
     Dates: start: 20140416
  6. PREDNISONE. [Suspect]
     Active Substance: PREDNISONE
     Indication: PRODUCT USED FOR UNKNOWN INDICATION
     Route: 048
  7. TOBRADEX [Concomitant]
     Active Substance: DEXAMETHASONE\TOBRAMYCIN
     Indication: EYE INFLAMMATION
     Route: 065
     Dates: start: 20180801
  8. CYCLOPHOSPHAMIDE. [Suspect]
     Active Substance: CYCLOPHOSPHAMIDE
     Indication: PRODUCT USED FOR UNKNOWN INDICATION
     Route: 065
  9. RESTASIS [Concomitant]
     Active Substance: CYCLOSPORINE
  10. MYFORTIC [Concomitant]
     Active Substance: MYCOPHENOLATE SODIUM
     Indication: PEMPHIGOID
     Dosage: SWITCHED TO CELLCEPT
     Route: 065
     Dates: end: 20141120
  11. METOPROLOL. [Concomitant]
     Active Substance: METOPROLOL
  12. LACTULOSE. [Concomitant]
     Active Substance: LACTULOSE
  13. IVIGLOB EX [Concomitant]
     Active Substance: HUMAN IMMUNOGLOBULIN G
  14. DOXYCYCLINE. [Concomitant]
     Active Substance: DOXYCYCLINE
     Route: 065
  15. DIPHENHYDRAMINE. [Concomitant]
     Active Substance: DIPHENHYDRAMINE
     Indication: PREMEDICATION
     Route: 048
     Dates: start: 20140416
  16. PANTOLOC [PANTOPRAZOLE] [Concomitant]
     Active Substance: PANTOPRAZOLE SODIUM

REACTIONS (16)
  - Depression [Recovering/Resolving]
  - Eye inflammation [Unknown]
  - Hypertension [Not Recovered/Not Resolved]
  - Pemphigoid [Not Recovered/Not Resolved]
  - Rhinalgia [Unknown]
  - Visual acuity reduced [Not Recovered/Not Resolved]
  - Glaucoma [Recovering/Resolving]
  - Weight increased [Not Recovered/Not Resolved]
  - White blood cell count decreased [Unknown]
  - Eye pain [Not Recovered/Not Resolved]
  - Conjunctival scar [Unknown]
  - Stress [Unknown]
  - Off label use [Unknown]
  - Pain [Recovering/Resolving]
  - Intentional product use issue [Unknown]
  - Cataract [Not Recovered/Not Resolved]

NARRATIVE: CASE EVENT DATE: 201804
